FAERS Safety Report 7941157-5 (Version None)
Quarter: 2011Q4

REPORT INFORMATION
  Report Type: 
  Country: None (occurrence: None)
  Receive Date: 20111128
  Receipt Date: 20111116
  Transmission Date: 20120403
  Serious: Yes (Other)
  Sender: FDA-Public Use
  Company Number: JP-JNJFOC-20111104391

PATIENT
  Age: 32 Year
  Sex: Female

DRUGS (3)
  1. INVEGA [Suspect]
     Indication: PRODUCT USED FOR UNKNOWN INDICATION
     Route: 048
     Dates: start: 20110801
  2. BROTIZOLAM [Concomitant]
     Route: 048
  3. ZYPREXA [Concomitant]
     Route: 048

REACTIONS (3)
  - ACNE [None]
  - PSYCHIATRIC SYMPTOM [None]
  - POVERTY OF SPEECH [None]
